FAERS Safety Report 20092215 (Version 1)
Quarter: 2021Q4

REPORT INFORMATION
  Report Type: Spontaneous
  Country: US (occurrence: None)
  Receive Date: 20211119
  Receipt Date: 20211119
  Transmission Date: 20220303
  Serious: Yes (Other)
  Sender: FDA-Public Use
  Company Number: None

PATIENT
  Age: 53 Year
  Sex: Female
  Weight: 58.5 kg

DRUGS (1)
  1. FORTEO [Suspect]
     Active Substance: TERIPARATIDE
     Indication: Osteoporosis
     Dosage: OTHER QUANTITY : 1 INJECTION(S);?FREQUENCY : AT BEDTIME;?
     Route: 058
     Dates: start: 20180116, end: 20190814

REACTIONS (4)
  - Bone lesion [None]
  - Osteocalcin increased [None]
  - C-telopeptide increased [None]
  - Hypergammaglobulinaemia [None]

NARRATIVE: CASE EVENT DATE: 20190703
